FAERS Safety Report 10256510 (Version 1)
Quarter: 2014Q2

REPORT INFORMATION
  Report Type: Spontaneous
  Country: US (occurrence: US)
  Receive Date: 20140624
  Receipt Date: 20140624
  Transmission Date: 20141212
  Serious: No
  Sender: FDA-Public Use
  Company Number: US-ZOGENIX, INC.-2012ZX000240

PATIENT
  Sex: Male
  Weight: 102.15 kg

DRUGS (7)
  1. SUMAVEL DOSEPRO [Suspect]
     Indication: MIGRAINE
  2. PRISTIQ [Concomitant]
     Indication: DEPRESSION
     Route: 048
  3. ZOCOR [Concomitant]
     Indication: BLOOD CHOLESTEROL
     Route: 048
  4. TIZANIDINE [Concomitant]
     Indication: MUSCLE TIGHTNESS
     Route: 048
  5. SINGULAIR [Concomitant]
     Indication: HYPERSENSITIVITY
  6. ANDROGEL [Concomitant]
     Indication: BLOOD TESTOSTERONE DECREASED
  7. OMEPRAZOLE [Concomitant]
     Indication: GASTROOESOPHAGEAL REFLUX DISEASE
     Route: 048

REACTIONS (1)
  - Injection site pain [Recovered/Resolved]
